FAERS Safety Report 9119859 (Version 1)
Quarter: 2013Q1

REPORT INFORMATION
  Report Type: Spontaneous
  Country: US (occurrence: US)
  Receive Date: 20130226
  Receipt Date: 20130226
  Transmission Date: 20140127
  Serious: No
  Sender: FDA-Public Use
  Company Number: US-009507513-1302USA011817

PATIENT
  Sex: Female
  Weight: 55.33 kg

DRUGS (3)
  1. IMPLANON [Suspect]
     Dosage: UNK
     Route: 059
     Dates: start: 201004
  2. TRAZODONE HYDROCHLORIDE [Concomitant]
  3. ZOLOFT [Concomitant]

REACTIONS (2)
  - Metrorrhagia [Recovered/Resolved]
  - Metrorrhagia [Unknown]
